FAERS Safety Report 5056729-8 (Version None)
Quarter: 2006Q2

REPORT INFORMATION
  Report Type: 
  Country: None (occurrence: None)
  Receive Date: 20060616
  Receipt Date: 20060517
  Transmission Date: 20061013
  Serious: No
  Sender: FDA-Public Use
  Company Number: 2006US001040

PATIENT
  Age: 65 Year
  Sex: Male

DRUGS (2)
  1. VESICARE [Suspect]
     Indication: INCONTINENCE
     Dosage: 5 MG, ORAL
     Route: 048
     Dates: start: 20060511, end: 20060514
  2. LEVAQUIN [Concomitant]

REACTIONS (2)
  - CONSTIPATION [None]
  - HAEMORRHOIDS [None]
